FAERS Safety Report 4476728-4 (Version None)
Quarter: 2004Q4

REPORT INFORMATION
  Report Type: 
  Country: None (occurrence: None)
  Receive Date: 20041013
  Receipt Date: 20041005
  Transmission Date: 20050328
  Serious: Yes (Death)
  Sender: FDA-Public Use
  Company Number: KII-2003-0003494

PATIENT
  Age: 79 Year
  Sex: Male

DRUGS (3)
  1. OXYCONTIN [Suspect]
     Indication: CANCER PAIN
     Dosage: 10 MG, BID
  2. MORPHINE SULFATE [Concomitant]
  3. METHADONE HCL [Concomitant]

REACTIONS (4)
  - COLON CANCER METASTATIC [None]
  - CONDITION AGGRAVATED [None]
  - METASTASES TO LIVER [None]
  - METASTASES TO PERITONEUM [None]
